FAERS Safety Report 18207272 (Version 1)
Quarter: 2020Q3

REPORT INFORMATION
  Report Type: Spontaneous
  Country: US (occurrence: US)
  Receive Date: 20200827
  Receipt Date: 20200827
  Transmission Date: 20201103
  Serious: No
  Sender: FDA-Public Use
  Company Number: None

PATIENT

DRUGS (1)
  1. KETAMINE [Suspect]
     Active Substance: KETAMINE

REACTIONS (5)
  - Hallucination, auditory [None]
  - Post-traumatic stress disorder [None]
  - Heart rate increased [None]
  - Panic disorder [None]
  - Loss of consciousness [None]
